FAERS Safety Report 23056902 (Version 5)
Quarter: 2024Q1

REPORT INFORMATION
  Report Type: Spontaneous
  Country: US (occurrence: US)
  Receive Date: 20231012
  Receipt Date: 20240304
  Transmission Date: 20240410
  Serious: Yes (Other)
  Sender: FDA-Public Use
  Company Number: US-SA-SAC20231010000868

PATIENT
  Age: 62 Year
  Sex: Female

DRUGS (1)
  1. KEVZARA [Suspect]
     Active Substance: SARILUMAB
     Indication: Rheumatoid arthritis
     Dosage: 200 MG, QOW
     Route: 058
     Dates: start: 202107, end: 20230928

REACTIONS (11)
  - Pneumonia [Unknown]
  - Rheumatoid arthritis [Unknown]
  - Arthropathy [Unknown]
  - Oropharyngeal pain [Not Recovered/Not Resolved]
  - Muscular weakness [Unknown]
  - Hand deformity [Unknown]
  - Herpes zoster [Unknown]
  - Nasopharyngitis [Not Recovered/Not Resolved]
  - Pharyngitis [Unknown]
  - Knee operation [Unknown]
  - Therapeutic response decreased [Unknown]

NARRATIVE: CASE EVENT DATE: 20230901
